FAERS Safety Report 16212483 (Version 5)
Quarter: 2019Q2

REPORT INFORMATION
  Report Type: Spontaneous
  Country: US (occurrence: US)
  Receive Date: 20190418
  Receipt Date: 20190502
  Transmission Date: 20190711
  Serious: Yes (Other)
  Sender: FDA-Public Use
  Company Number: US-PFIZER INC-2019164597

PATIENT
  Age: 88 Year
  Sex: Male
  Weight: 113 kg

DRUGS (9)
  1. ADVAIR HFA [Concomitant]
     Active Substance: FLUTICASONE PROPIONATE\SALMETEROL XINAFOATE
     Indication: TUBERCULOSIS
     Dosage: 1 DF, 2X/DAY(250/50 MCG PER PUFF, 1 PUFF IN MORNING AND 1 PUFF AT NIGHT)
     Route: 055
     Dates: start: 1999
  2. ADVAIR HFA [Concomitant]
     Active Substance: FLUTICASONE PROPIONATE\SALMETEROL XINAFOATE
     Indication: RESPIRATORY DISORDER
  3. AMOXICILLIN. [Concomitant]
     Active Substance: AMOXICILLIN
     Indication: INFECTION
     Dosage: 1 DF, 2X/DAY
     Route: 048
     Dates: start: 20190102
  4. AMOXICILLIN. [Concomitant]
     Active Substance: AMOXICILLIN
     Indication: POST PROCEDURAL INFECTION
  5. METOPROLOL TARTRATE. [Concomitant]
     Active Substance: METOPROLOL TARTRATE
     Indication: CARDIAC DISORDER
     Dosage: 12.5 MG, 1X/DAY(1/2 TABLET ONCE PER DAY)
     Route: 048
     Dates: start: 2017
  6. TOVIAZ [Suspect]
     Active Substance: FESOTERODINE FUMARATE
     Indication: DYSURIA
     Dosage: 4 MG, 1X/DAY
     Route: 048
     Dates: start: 20190411
  7. ELIQUIS [Suspect]
     Active Substance: APIXABAN
     Indication: CEREBROVASCULAR ACCIDENT PROPHYLAXIS
     Dosage: 2.5 ABSENT, BID
     Route: 048
     Dates: start: 2017
  8. FUROSEMIDE. [Concomitant]
     Active Substance: FUROSEMIDE
     Dosage: 20 MG, 1X/DAY
     Route: 048
     Dates: start: 2017
  9. VITAMIN D3 [Concomitant]
     Active Substance: CHOLECALCIFEROL
     Dosage: 50 MG, DAILY
     Route: 048
     Dates: start: 201901

REACTIONS (6)
  - Arthropathy [Unknown]
  - Post procedural infection [Unknown]
  - Dry throat [Unknown]
  - Dysuria [Unknown]
  - Product use issue [Unknown]
  - Dry mouth [Not Recovered/Not Resolved]

NARRATIVE: CASE EVENT DATE: 20190414
